FAERS Safety Report 4279193-5 (Version None)
Quarter: 2004Q1

REPORT INFORMATION
  Report Type: 
  Country: None (occurrence: None)
  Receive Date: 20040126
  Receipt Date: 20040126
  Transmission Date: 20041129
  Serious: Yes (Other)
  Sender: FDA-Public Use
  Company Number: None

PATIENT
  Age: 48 Year
  Sex: Male

DRUGS (5)
  1. METFORMIN HCL 500 [Suspect]
     Indication: DIABETES MELLITUS
     Dosage: 1 BID
     Dates: start: 20040101, end: 20040116
  2. COZAAR [Concomitant]
  3. LIPITOR [Concomitant]
  4. POLGARD [Concomitant]
  5. NIACIN [Concomitant]

REACTIONS (1)
  - DIABETES MELLITUS INADEQUATE CONTROL [None]
